FAERS Safety Report 10029504 (Version 2)
Quarter: 2014Q1

REPORT INFORMATION
  Report Type: Report from Study
  Country: KR (occurrence: KR)
  Receive Date: 20140322
  Receipt Date: 20140327
  Transmission Date: 20141002
  Serious: Yes (Hospitalization)
  Sender: FDA-Public Use
  Company Number: KR-ROCHE-1367142

PATIENT
  Age: 43 Year
  Sex: Male
  Weight: 68.3 kg

DRUGS (12)
  1. OBINUTUZUMAB [Suspect]
     Indication: DIFFUSE LARGE B-CELL LYMPHOMA
     Dosage: DOSE CONCENTRATION OF LAST GA101 TAKEN 4 MG/ML?VOLUME OF LAST GA101 TAKEN 250 ML  ?DATE OF MOST RECE
     Route: 042
     Dates: start: 20131030
  2. CYCLOPHOSPHAMIDE [Suspect]
     Indication: DIFFUSE LARGE B-CELL LYMPHOMA
     Dosage: DOSE OF LAST CYCLOPHOSPHAMIDE TAKEN 1418 MG  ?DATE OF MOST RECENT DOSE OF CYCLOPHOSPHAMIDE PRIOR TO
     Route: 042
     Dates: start: 20131030
  3. DOXORUBICIN [Suspect]
     Indication: DIFFUSE LARGE B-CELL LYMPHOMA
     Dosage: DOSE OF LAST DOXORUBICIN TAKEN 71 MG?DATE OF MOST RECENT DOSE OF DOXORUBICIN PRIOR TO AE ONSET 05/MA
     Route: 042
     Dates: start: 20131030
  4. VINCRISTINE [Suspect]
     Indication: DIFFUSE LARGE B-CELL LYMPHOMA
     Dosage: DOSE OF LAST VINCRISTINE TAKEN 2 MG?DATE OF MOST RECENT DOSE OF VINCRISTINE PRIOR TO AE ONSET 05/MAR
     Route: 040
     Dates: start: 20131030
  5. PREDNISONE [Suspect]
     Indication: DIFFUSE LARGE B-CELL LYMPHOMA
     Dosage: DOSE OF LAST PREDNISONE 100 MG ?DATE OF MOST RECENT DOSE OF PREDNISONE PRIOR TO AE ONSET 09/MAR/2014
     Route: 065
     Dates: start: 20131030
  6. ALLOPURINOL [Concomitant]
     Indication: TUMOUR LYSIS SYNDROME
     Route: 065
     Dates: start: 20131022
  7. ALDRIN [Concomitant]
     Indication: STOMATITIS
     Route: 065
     Dates: start: 20131022
  8. GASTER (SOUTH KOREA) [Concomitant]
     Indication: STOMATITIS
  9. CITOPCIN [Concomitant]
     Route: 065
     Dates: start: 20131022
  10. IFECTRA [Concomitant]
     Route: 065
     Dates: start: 20131022
  11. ACETAMINOPHEN [Concomitant]
     Route: 065
     Dates: start: 20131113
  12. SMECTA (SOUTH KOREA) [Concomitant]
     Route: 065
     Dates: start: 20131109

REACTIONS (1)
  - Febrile neutropenia [Recovered/Resolved]
